FAERS Safety Report 8032539-4 (Version None)
Quarter: 2012Q1

REPORT INFORMATION
  Report Type: 
  Country: None (occurrence: None)
  Receive Date: 20120110
  Receipt Date: 20111003
  Transmission Date: 20120608
  Serious: No
  Sender: FDA-Public Use
  Company Number: US-MYLANLABS-2011S1020817

PATIENT
  Sex: Female

DRUGS (4)
  1. BAYCOL [Suspect]
     Indication: BLOOD CHOLESTEROL INCREASED
  2. LOVASTATIN [Suspect]
     Indication: BLOOD CHOLESTEROL INCREASED
  3. CRESTOR [Suspect]
     Indication: BLOOD CHOLESTEROL INCREASED
  4. LIPITOR [Suspect]
     Indication: BLOOD CHOLESTEROL INCREASED

REACTIONS (3)
  - CONFUSIONAL STATE [None]
  - FATIGUE [None]
  - LISTLESS [None]
